FAERS Safety Report 11208615 (Version 1)
Quarter: 2015Q2

REPORT INFORMATION
  Report Type: Report from Study
  Country: CA (occurrence: CA)
  Receive Date: 20150622
  Receipt Date: 20150622
  Transmission Date: 20150821
  Serious: Yes (Hospitalization)
  Sender: FDA-Public Use
  Company Number: CA-ABBVIE-15K-028-1410372-00

PATIENT
  Age: 35 Year
  Sex: Female

DRUGS (1)
  1. HUMIRA [Suspect]
     Active Substance: ADALIMUMAB
     Indication: CROHN^S DISEASE
     Route: 058
     Dates: start: 20140818

REACTIONS (5)
  - Arthralgia [Unknown]
  - Abscess intestinal [Unknown]
  - Blister [Unknown]
  - Joint range of motion decreased [Unknown]
  - Pneumothorax [Unknown]

NARRATIVE: CASE EVENT DATE: 201504
